FAERS Safety Report 9140079 (Version 1)
Quarter: 2013Q1

REPORT INFORMATION
  Report Type: Spontaneous
  Country: FR (occurrence: FR)
  Receive Date: 20130305
  Receipt Date: 20130305
  Transmission Date: 20140127
  Serious: Yes (Other)
  Sender: FDA-Public Use
  Company Number: FR-ASTRAZENECA-2013SE11187

PATIENT
  Age: 20 Year
  Sex: Male

DRUGS (1)
  1. XEROQUEL [Suspect]
     Indication: SCHIZOPHRENIA, PARANOID TYPE
     Dosage: 50 OR 100 MG PER DAY
     Route: 048
     Dates: start: 201212

REACTIONS (2)
  - Chorea [Recovered/Resolved]
  - Influenza like illness [Unknown]
